FAERS Safety Report 7514872-5 (Version None)
Quarter: 2011Q2

REPORT INFORMATION
  Report Type: 
  Country: None (occurrence: None)
  Receive Date: 20110601
  Receipt Date: 20110518
  Transmission Date: 20111010
  Serious: Yes (Other)
  Sender: FDA-Public Use
  Company Number: US-JNJFOC-20110308261

PATIENT
  Age: 39 Year
  Sex: Female
  Weight: 66 kg

DRUGS (4)
  1. REMICADE [Suspect]
     Indication: UVEITIS
     Dosage: CYCLE 1
     Route: 042
  2. REMICADE [Suspect]
     Dosage: CYCLE 2, 2ND INFUSION
     Route: 042
     Dates: start: 20110304
  3. PREDNISONE [Concomitant]
     Route: 047
  4. TIMOLOL MALEATE [Concomitant]
     Route: 047

REACTIONS (2)
  - INFUSION RELATED REACTION [None]
  - SUPRAVENTRICULAR TACHYCARDIA [None]
